FAERS Safety Report 4421830-6 (Version None)
Quarter: 2004Q3

REPORT INFORMATION
  Report Type: 
  Country: None (occurrence: None)
  Receive Date: 20040806
  Receipt Date: 20040729
  Transmission Date: 20050211
  Serious: Yes (Other)
  Sender: FDA-Public Use
  Company Number: VISP-PR-0407S-0268

PATIENT
  Age: 63 Year
  Sex: Male

DRUGS (1)
  1. VISIPAQUE [Suspect]
     Indication: CAROTID ARTERY STENOSIS
     Dosage: 500 ML, SINGLE DOSE, I.A.
     Dates: start: 20040727, end: 20040727

REACTIONS (5)
  - ALCOHOL WITHDRAWAL SYNDROME [None]
  - APHASIA [None]
  - CEREBRAL ARTERY OCCLUSION [None]
  - CONFUSIONAL STATE [None]
  - HEMIPARESIS [None]
